FAERS Safety Report 12484593 (Version 1)
Quarter: 2016Q2

REPORT INFORMATION
  Report Type: Spontaneous
  Country: JP (occurrence: JP)
  Receive Date: 20160621
  Receipt Date: 20160621
  Transmission Date: 20160815
  Serious: Yes (Other)
  Sender: FDA-Public Use
  Company Number: JP-TEVA-2016-JP-001294J

PATIENT
  Age: 64 Year
  Sex: Male

DRUGS (13)
  1. NOVAMIN [Concomitant]
     Active Substance: PROCHLORPERAZINE MALEATE
     Route: 065
  2. RIZE [Concomitant]
     Active Substance: CLOTIAZEPAM
     Indication: ARRHYTHMIA
     Route: 065
  3. VASOLAN [Concomitant]
     Active Substance: VERAPAMIL HYDROCHLORIDE
     Route: 065
  4. SUNRYTHM [Concomitant]
     Active Substance: PILSICAINIDE HYDROCHLORIDE
     Route: 065
  5. OLMETEC [Concomitant]
     Active Substance: OLMESARTAN MEDOXOMIL
     Route: 065
  6. HARNAL [Concomitant]
     Active Substance: TAMSULOSIN HYDROCHLORIDE
     Route: 065
  7. NORVASC [Concomitant]
     Active Substance: AMLODIPINE BESYLATE
     Route: 065
  8. CALONAL [Concomitant]
     Active Substance: ACETAMINOPHEN
     Route: 065
  9. PRINK INJECTION SYRINGE 5MICROG [Suspect]
     Active Substance: ALPROSTADIL
     Indication: PRODUCT USED FOR UNKNOWN INDICATION
     Dosage: 1 ML DAILY;
     Route: 041
     Dates: start: 20160525, end: 20160528
  10. VITAMINS NOS [Concomitant]
     Active Substance: VITAMINS
     Route: 065
  11. TRAMAL OD [Concomitant]
     Active Substance: TRAMADOL
     Route: 065
  12. FAMOTIDINE OD [Concomitant]
     Active Substance: FAMOTIDINE
     Route: 065
  13. LYRICA [Concomitant]
     Active Substance: PREGABALIN
     Route: 065

REACTIONS (1)
  - Pyrexia [Recovered/Resolved]

NARRATIVE: CASE EVENT DATE: 20160528
